FAERS Safety Report 12174444 (Version 1)
Quarter: 2016Q1

REPORT INFORMATION
  Report Type: Spontaneous
  Country: SE (occurrence: SE)
  Receive Date: 20160313
  Receipt Date: 20160313
  Transmission Date: 20160526
  Serious: Yes (Death)
  Sender: FDA-Public Use
  Company Number: SE-CIPLA LTD.-2016SE02272

PATIENT

DRUGS (5)
  1. CITALOPRAM [Suspect]
     Active Substance: CITALOPRAM HYDROBROMIDE
     Dosage: UNK
     Route: 065
  2. ZOPICLONE [Suspect]
     Active Substance: ZOPICLONE
     Dosage: UNK
     Route: 065
  3. DIHYDROPROPIOMAZINE [Suspect]
     Active Substance: PROPIOMAZINE HYDROCHLORIDE
     Dosage: UNK
     Route: 065
  4. ETHANOL [Suspect]
     Active Substance: ALCOHOL
     Dosage: UNK
     Route: 065
  5. PROPIOMAZINE [Suspect]
     Active Substance: PROPIOMAZINE
     Dosage: UNK
     Route: 065

REACTIONS (2)
  - Accident [Fatal]
  - Poisoning [Fatal]
